FAERS Safety Report 19759197 (Version 6)
Quarter: 2022Q3

REPORT INFORMATION
  Report Type: Other
  Country: AR (occurrence: AR)
  Receive Date: 20210827
  Receipt Date: 20220720
  Transmission Date: 20221026
  Serious: Yes (Hospitalization)
  Sender: FDA-Public Use
  Company Number: AR-002147023-NVSC2021AR190230

PATIENT
  Age: 8 Year
  Sex: Male

DRUGS (1)
  1. XOLAIR [Suspect]
     Active Substance: OMALIZUMAB
     Indication: Asthma
     Dosage: 900 MG, QMO
     Route: 065
     Dates: start: 20210623

REACTIONS (13)
  - Blood immunoglobulin E increased [Unknown]
  - Condition aggravated [Unknown]
  - Pain in extremity [Unknown]
  - Urticaria [Unknown]
  - Peripheral swelling [Unknown]
  - Limb discomfort [Unknown]
  - Rhinorrhoea [Unknown]
  - Pharyngitis [Unknown]
  - Insomnia [Unknown]
  - Vomiting [Unknown]
  - Malaise [Unknown]
  - Injection site swelling [Unknown]
  - Inappropriate schedule of product administration [Unknown]

NARRATIVE: CASE EVENT DATE: 20220622
